FAERS Safety Report 7684219-2 (Version None)
Quarter: 2011Q3

REPORT INFORMATION
  Report Type: 
  Country: None (occurrence: None)
  Receive Date: 20110815
  Receipt Date: 20110811
  Transmission Date: 20111222
  Serious: Yes (Hospitalization, Other)
  Sender: FDA-Public Use
  Company Number: US-MERCK-1012USA01313

PATIENT
  Age: 59 Year
  Sex: Female
  Weight: 77 kg

DRUGS (3)
  1. FOSAMAX [Suspect]
     Route: 048
     Dates: start: 20080306, end: 20080401
  2. BONIVA [Suspect]
     Indication: OSTEOPOROSIS
     Route: 048
     Dates: end: 20091201
  3. FOSAMAX [Suspect]
     Indication: OSTEOPOROSIS
     Route: 048
     Dates: start: 19970101, end: 20090501

REACTIONS (59)
  - SPINAL COLUMN STENOSIS [None]
  - BONE LOSS [None]
  - DRY MOUTH [None]
  - LYMPHOEDEMA [None]
  - AUTOIMMUNE DISORDER [None]
  - DIZZINESS [None]
  - LIMB DISCOMFORT [None]
  - DYSPNOEA EXERTIONAL [None]
  - ARTHRALGIA [None]
  - HYPOTHYROIDISM [None]
  - GRANULOMA [None]
  - FEMUR FRACTURE [None]
  - BASAL CELL CARCINOMA [None]
  - ARTHROPATHY [None]
  - RENAL FAILURE [None]
  - PALPITATIONS [None]
  - BLOOD THYROID STIMULATING HORMONE DECREASED [None]
  - SENSITIVITY OF TEETH [None]
  - VENTRICULAR EXTRASYSTOLES [None]
  - MUSCULOSKELETAL DISCOMFORT [None]
  - BREAST DISORDER [None]
  - CHOLELITHIASIS [None]
  - CATARACT [None]
  - TOOTH DISORDER [None]
  - BLOOD PARATHYROID HORMONE INCREASED [None]
  - LOW TURNOVER OSTEOPATHY [None]
  - ADVERSE DRUG REACTION [None]
  - FRACTURE NONUNION [None]
  - SYNOVIAL CYST [None]
  - RESTLESS LEGS SYNDROME [None]
  - CARDIAC DISORDER [None]
  - DEPRESSION [None]
  - TREATMENT NONCOMPLIANCE [None]
  - OCCULT BLOOD POSITIVE [None]
  - ROAD TRAFFIC ACCIDENT [None]
  - SEASONAL ALLERGY [None]
  - CARDIAC MURMUR [None]
  - BILIARY COLIC [None]
  - VENOUS INSUFFICIENCY [None]
  - HYPERLIPIDAEMIA [None]
  - FALL [None]
  - CAROTID ARTERY STENOSIS [None]
  - FRACTURE DELAYED UNION [None]
  - CHRONIC OBSTRUCTIVE PULMONARY DISEASE [None]
  - VITAMIN D DECREASED [None]
  - PAIN IN EXTREMITY [None]
  - TUBERCULOSIS [None]
  - TONGUE GEOGRAPHIC [None]
  - NODULE [None]
  - ALOPECIA [None]
  - CHOLECYSTITIS [None]
  - THERMAL BURN [None]
  - INTERMITTENT CLAUDICATION [None]
  - CARPAL TUNNEL SYNDROME [None]
  - ANXIETY [None]
  - AORTIC DISORDER [None]
  - SPINAL DISORDER [None]
  - ASTHMA [None]
  - GASTRITIS [None]
